FAERS Safety Report 6722462-7 (Version None)
Quarter: 2010Q2

REPORT INFORMATION
  Report Type: 
  Country: None (occurrence: None)
  Receive Date: 20100512
  Receipt Date: 20100505
  Transmission Date: 20101027
  Serious: Yes (Other)
  Sender: FDA-Public Use
  Company Number: GXKR2010GB04242

PATIENT
  Age: 88 Year
  Sex: Male
  Weight: 65 kg

DRUGS (6)
  1. DORZOLAMIDE (NGX) [Suspect]
     Indication: GLAUCOMA
     Dosage: UNK
     Route: 047
     Dates: start: 20041101
  2. ACETYLSALICYLIC ACID SRT [Suspect]
     Indication: ATRIAL FIBRILLATION
     Dosage: 75 MG, UNK
     Route: 048
     Dates: start: 20011116
  3. BRIMONIDINE TARTRATE [Suspect]
     Indication: GLAUCOMA
     Dosage: UNK
     Route: 047
     Dates: start: 20051019
  4. FOLIC ACID [Suspect]
     Indication: ANAEMIA
     Dosage: 5 MG, UNK
     Route: 048
     Dates: start: 20040604
  5. BIMATOPROST AND TIMOLOL MALEATE [Suspect]
     Indication: GLAUCOMA
     Dosage: UNK
     Route: 047
     Dates: start: 20080919
  6. NULYTELY [Suspect]
     Indication: CONSTIPATION
     Dosage: 1 DF, QD
     Route: 048
     Dates: start: 20051013

REACTIONS (2)
  - NEPHROPATHY TOXIC [None]
  - RENAL IMPAIRMENT [None]
